FAERS Safety Report 9198453 (Version 3)
Quarter: 2013Q2

REPORT INFORMATION
  Report Type: Report from Study
  Country: US (occurrence: US)
  Receive Date: 20130329
  Receipt Date: 20130430
  Transmission Date: 20140414
  Serious: Yes (Hospitalization)
  Sender: FDA-Public Use
  Company Number: US-JNJFOC-20130315708

PATIENT
  Age: 18 Year
  Sex: Male
  Weight: 66.4 kg

DRUGS (11)
  1. REMICADE [Suspect]
     Indication: INFLAMMATORY BOWEL DISEASE
     Route: 042
     Dates: start: 20061113
  2. HUMIRA [Suspect]
     Indication: INFLAMMATORY BOWEL DISEASE
     Route: 065
     Dates: start: 20130318
  3. HUMIRA [Suspect]
     Indication: INFLAMMATORY BOWEL DISEASE
     Route: 065
     Dates: start: 20070901
  4. METHOTREXATE [Suspect]
     Indication: INFLAMMATORY BOWEL DISEASE
     Route: 065
  5. METHOTREXATE [Suspect]
     Indication: INFLAMMATORY BOWEL DISEASE
     Route: 065
     Dates: start: 20130318
  6. ERGOCALCIFEROL [Concomitant]
     Route: 065
  7. FOLIC ACID [Concomitant]
     Route: 065
  8. HYDROCORTISONE [Concomitant]
     Route: 065
  9. FERROUS SULFATE [Concomitant]
     Route: 065
  10. LOPERAMIDE [Concomitant]
     Route: 065
  11. MULTIVITAMIN [Concomitant]
     Route: 065

REACTIONS (1)
  - Gastroenteritis norovirus [Recovered/Resolved]
